FAERS Safety Report 19222755 (Version 3)
Quarter: 2021Q3

REPORT INFORMATION
  Report Type: Spontaneous
  Country: US (occurrence: US)
  Receive Date: 20210506
  Receipt Date: 20210826
  Transmission Date: 20211014
  Serious: Yes (Other)
  Sender: FDA-Public Use
  Company Number: US-PFIZER INC-2021461430

PATIENT
  Age: 84 Year
  Sex: Female
  Weight: 74.38 kg

DRUGS (12)
  1. ATORVASTATIN [Concomitant]
     Active Substance: ATORVASTATIN
     Dosage: UNK, 1X/DAY
     Dates: start: 2018
  2. HYDROCHLOROTHIAZIDE. [Concomitant]
     Active Substance: HYDROCHLOROTHIAZIDE
  3. METOPROLOL TARTRATE. [Concomitant]
     Active Substance: METOPROLOL TARTRATE
  4. NOVOLOG [Concomitant]
     Active Substance: INSULIN ASPART
  5. AMLODIPINE [Concomitant]
     Active Substance: AMLODIPINE BESYLATE
     Indication: HYPERTENSION
     Dosage: UNK, 1X/DAY
     Dates: start: 2019
  6. CHANTIX [Suspect]
     Active Substance: VARENICLINE TARTRATE
     Indication: SMOKING CESSATION THERAPY
     Dosage: 1 MG FOR 90 DAYS (QUANTITY FOR 90 DAYS: 180 TABS)
     Route: 048
     Dates: start: 202103, end: 202104
  7. CHANTIX [Suspect]
     Active Substance: VARENICLINE TARTRATE
     Dosage: 0.5 MG FOR 90 DAYS (QUANTITY FOR 90 DAYS: 60 TABS)
     Route: 048
     Dates: start: 202103, end: 202104
  8. CILOSTAZOL. [Concomitant]
     Active Substance: CILOSTAZOL
  9. ALLOPURINOL. [Concomitant]
     Active Substance: ALLOPURINOL
  10. LOSARTAN. [Concomitant]
     Active Substance: LOSARTAN
  11. HYDRALAZINE [Concomitant]
     Active Substance: HYDRALAZINE HYDROCHLORIDE
  12. RANOLAZINE. [Concomitant]
     Active Substance: RANOLAZINE
     Indication: CARDIAC DISORDER
     Dosage: UNK, DAILY
     Dates: start: 202103

REACTIONS (4)
  - Cardiac disorder [Unknown]
  - Arteriosclerosis coronary artery [Unknown]
  - Atrioventricular block [Unknown]
  - Blood cholesterol abnormal [Unknown]
